FAERS Safety Report 11415823 (Version 1)
Quarter: 2015Q3

REPORT INFORMATION
  Report Type: Spontaneous
  Country: US (occurrence: US)
  Receive Date: 20150825
  Receipt Date: 20150825
  Transmission Date: 20151125
  Serious: No
  Sender: FDA-Public Use
  Company Number: US-GLAXOSMITHKLINE-US2015118690

PATIENT
  Age: 40 Year
  Sex: Female

DRUGS (3)
  1. TANZEUM [Suspect]
     Active Substance: ALBIGLUTIDE
     Dosage: 50 UNK, UNK
     Dates: start: 201506
  2. TANZEUM [Suspect]
     Active Substance: ALBIGLUTIDE
     Indication: PRODUCT USED FOR UNKNOWN INDICATION
     Dosage: 30 MG, UNK
     Dates: start: 20150330
  3. TANZEUM [Suspect]
     Active Substance: ALBIGLUTIDE
     Dosage: 30 UNK, UNK
     Dates: start: 201507

REACTIONS (4)
  - Drug ineffective [Recovering/Resolving]
  - Underdose [Unknown]
  - Incorrect dose administered [Unknown]
  - Drug dispensing error [Recovering/Resolving]

NARRATIVE: CASE EVENT DATE: 201507
